FAERS Safety Report 20802535 (Version 1)
Quarter: 2022Q2

REPORT INFORMATION
  Report Type: Spontaneous
  Country: US (occurrence: None)
  Receive Date: 20220509
  Receipt Date: 20220509
  Transmission Date: 20220721
  Serious: No
  Sender: FDA-Public Use
  Company Number: None

PATIENT
  Age: 76 Year
  Sex: Male

DRUGS (1)
  1. HYDROXYZINE HYDROCHLORIDE [Suspect]
     Active Substance: HYDROXYZINE HYDROCHLORIDE
     Dosage: 1 TAB BID PO
     Route: 048
     Dates: start: 20211117, end: 20220210

REACTIONS (3)
  - Agitation [None]
  - Hypertension [None]
  - Insomnia [None]

NARRATIVE: CASE EVENT DATE: 20220210
